FAERS Safety Report 4640734-7 (Version None)
Quarter: 2005Q2

REPORT INFORMATION
  Report Type: 
  Country: None (occurrence: None)
  Receive Date: 20050419
  Receipt Date: 20050401
  Transmission Date: 20051028
  Serious: Yes (Hospitalization)
  Sender: FDA-Public Use
  Company Number: 10793

PATIENT
  Age: 58 Year
  Sex: Female

DRUGS (10)
  1. CARBOPLATIN [Suspect]
     Indication: OVARIAN CANCER
     Dosage: 537 MG FREQ IV
     Route: 042
     Dates: start: 20050315, end: 20050315
  2. ATORVASTATIN CALCIUM [Concomitant]
  3. DEXAMETHASONE [Concomitant]
  4. GRANISETRON [Concomitant]
  5. CHLORPHENIRAMINE MALEATE [Concomitant]
  6. RANITIDINE [Concomitant]
  7. PACLITAXEL [Concomitant]
  8. CARBOPLATIN [Concomitant]
  9. ONDANSETRON [Concomitant]
  10. PEGFILGRASTIM [Concomitant]

REACTIONS (5)
  - COLD SWEAT [None]
  - COMA [None]
  - FEELING COLD [None]
  - UNRESPONSIVE TO VERBAL STIMULI [None]
  - VOMITING [None]
